FAERS Safety Report 19136193 (Version 2)
Quarter: 2021Q2

REPORT INFORMATION
  Report Type: Spontaneous
  Country: BE (occurrence: BE)
  Receive Date: 20210414
  Receipt Date: 20210615
  Transmission Date: 20210717
  Serious: Yes (Other)
  Sender: FDA-Public Use
  Company Number: NVSC2021BE081658

PATIENT
  Age: 36 Year
  Sex: Female

DRUGS (5)
  1. NORADRENALINE [Suspect]
     Active Substance: NOREPINEPHRINE
     Indication: BLOOD PRESSURE ABNORMAL
     Dosage: UNK
     Route: 065
  2. VANCOMYCIN [Suspect]
     Active Substance: VANCOMYCIN
     Indication: ALPHA HAEMOLYTIC STREPTOCOCCAL INFECTION
     Dosage: UNK
     Route: 065
  3. CEFTRIAXONE. [Suspect]
     Active Substance: CEFTRIAXONE
     Indication: EVIDENCE BASED TREATMENT
     Dosage: UNK
     Route: 065
  4. HYDROXYCHLOROQUINE [Suspect]
     Active Substance: HYDROXYCHLOROQUINE
     Indication: EVIDENCE BASED TREATMENT
     Dosage: UNK
     Route: 065
  5. FLUCONAZOLE. [Suspect]
     Active Substance: FLUCONAZOLE
     Indication: CANDIDA INFECTION
     Dosage: UNK
     Route: 065

REACTIONS (2)
  - Abortion spontaneous [Unknown]
  - Maternal exposure during pregnancy [Unknown]
